FAERS Safety Report 18537171 (Version 1)
Quarter: 2020Q4

REPORT INFORMATION
  Report Type: Spontaneous
  Country: US (occurrence: US)
  Receive Date: 20201123
  Receipt Date: 20201123
  Transmission Date: 20210114
  Serious: No
  Sender: FDA-Public Use
  Company Number: US-PERRIGO-20US005482

PATIENT
  Age: 67 Year
  Sex: Male
  Weight: 108.84 kg

DRUGS (1)
  1. POLYETHYLENE GLYCOL 3350. [Suspect]
     Active Substance: POLYETHYLENE GLYCOL 3350
     Indication: PROPHYLAXIS
     Dosage: 17 G, QD
     Route: 048
     Dates: start: 20181118, end: 20200412

REACTIONS (3)
  - Incorrect product administration duration [Recovered/Resolved]
  - Faeces discoloured [Not Recovered/Not Resolved]
  - Off label use [Not Recovered/Not Resolved]

NARRATIVE: CASE EVENT DATE: 20181118
